FAERS Safety Report 9051548 (Version 3)
Quarter: 2013Q4

REPORT INFORMATION
  Report Type: Report from Study
  Country: JP (occurrence: JP)
  Receive Date: 20130207
  Receipt Date: 20131014
  Transmission Date: 20140711
  Serious: No
  Sender: FDA-Public Use
  Company Number: JP-009507513-1302JPN001332

PATIENT
  Age: 47 Year
  Sex: Female
  Weight: 42 kg

DRUGS (12)
  1. REBETOL [Suspect]
     Indication: CHRONIC HEPATITIS C
     Dosage: 200 MG IN THE MORNING, 400 MG AT NIGHT, TID
     Route: 048
     Dates: start: 20111105, end: 20111125
  2. REBETOL [Suspect]
     Dosage: 200 MG IN THE MORNING, 400 MGAT NIGHT, TID
     Route: 048
     Dates: start: 20111127, end: 20120713
  3. FERON [Suspect]
     Indication: CHRONIC HEPATITIS C
     Dosage: 600 MILLION-BILLION UNIT, QD
     Route: 042
     Dates: start: 20111105, end: 20111107
  4. FERON [Suspect]
     Dosage: 300 MILLION-BILLION UNIT, QD
     Route: 042
     Dates: start: 20111108, end: 20111113
  5. FERON [Suspect]
     Dosage: 600 MILLION-BILLION UNIT, QD
     Route: 042
     Dates: start: 20111114, end: 20111125
  6. FERON [Suspect]
     Dosage: 300 MILLION-BILLION UNIT, QD
     Route: 042
     Dates: start: 20111128, end: 20111201
  7. FERON [Suspect]
     Dosage: 600 MILLION-BILLION UNIT, QD
     Route: 042
     Dates: start: 20111202, end: 20111202
  8. FERON [Suspect]
     Dosage: 600 MILLION-BILLION UNIT, QD
     Route: 042
     Dates: start: 20111205, end: 20120713
  9. NEO-MINOPHAGEN C [Concomitant]
     Indication: CHRONIC HEPATITIS C
     Dosage: 40 ML, 3 TIMES IN 1 WEEK
     Route: 051
     Dates: start: 20110829, end: 20111030
  10. URSO [Concomitant]
     Indication: CHRONIC HEPATITIS C
     Dosage: 300 MG, QD
     Route: 048
     Dates: start: 20110824, end: 20111030
  11. SELBEX [Concomitant]
     Indication: GASTRITIS PROPHYLAXIS
     Dosage: 50 MG, QD, AS NEEDED AT THERMACOGENESIS
     Route: 048
     Dates: start: 20111114, end: 20120119
  12. SELBEX [Concomitant]
     Indication: GASTRITIS PROPHYLAXIS
     Dosage: 0.5 G, QD,AS NEEDED AT PAIN HEAD, FORMULATION : FGR
     Route: 048
     Dates: start: 20111129, end: 20120106

REACTIONS (19)
  - Pruritus [Recovered/Resolved]
  - Pyrexia [Recovered/Resolved]
  - Depressive symptom [Recovered/Resolved]
  - Anxiety [Recovering/Resolving]
  - Decreased appetite [Recovered/Resolved]
  - Proteinuria [Recovered/Resolved]
  - Nausea [Recovered/Resolved]
  - Hallucination, auditory [Recovered/Resolved]
  - Glossodynia [Recovered/Resolved]
  - Red blood cell count decreased [Recovered/Resolved]
  - Haemoglobin decreased [Recovered/Resolved]
  - Haematocrit decreased [Recovered/Resolved]
  - White blood cell count decreased [Not Recovered/Not Resolved]
  - Neutrophil count decreased [Not Recovered/Not Resolved]
  - Lymphocyte count increased [Not Recovered/Not Resolved]
  - Platelet count decreased [Recovered/Resolved]
  - Protein total decreased [Recovered/Resolved]
  - Blood cholesterol decreased [Recovered/Resolved]
  - Headache [Recovered/Resolved]
